FAERS Safety Report 5199991-3 (Version None)
Quarter: 2007Q1

REPORT INFORMATION
  Report Type: 
  Country: None (occurrence: None)
  Receive Date: 20070105
  Receipt Date: 20061224
  Transmission Date: 20070707
  Serious: Yes (Hospitalization)
  Sender: FDA-Public Use
  Company Number: PH-BRISTOL-MYERS SQUIBB COMPANY-13624598

PATIENT
  Age: 49 Year
  Sex: Male

DRUGS (6)
  1. SAXAGLIPTIN [Suspect]
     Indication: DIABETES MELLITUS NON-INSULIN-DEPENDENT
     Route: 048
     Dates: start: 20061208
  2. BLINDED: PLACEBO [Suspect]
     Indication: DIABETES MELLITUS NON-INSULIN-DEPENDENT
     Route: 048
     Dates: start: 20061208
  3. PIOGLITAZONE HCL [Concomitant]
     Dates: start: 20060719
  4. LOSARTAN POTASSIUM [Concomitant]
     Dates: start: 20061128
  5. ASPIRIN [Concomitant]
     Dates: start: 20061128
  6. CLONIDINE [Concomitant]
     Dates: start: 20060404

REACTIONS (1)
  - HYPERTENSIVE EMERGENCY [None]
